FAERS Safety Report 18729774 (Version 1)
Quarter: 2021Q1

REPORT INFORMATION
  Report Type: Spontaneous
  Country: CN (occurrence: CN)
  Receive Date: 20210112
  Receipt Date: 20210112
  Transmission Date: 20210419
  Serious: Yes (Other)
  Sender: FDA-Public Use
  Company Number: CN-PFIZER INC-2021003813

PATIENT
  Sex: Female

DRUGS (12)
  1. MEDROL [Suspect]
     Active Substance: METHYLPREDNISOLONE
     Dosage: 8 MG, 2X/DAY
  2. DYDROGESTERONE [Concomitant]
     Active Substance: DYDROGESTERONE
     Dosage: 40 MG, DAILY
  3. PROGRAF [Concomitant]
     Active Substance: TACROLIMUS
     Dosage: 12.7 NG/ML
  4. PROGRAF [Concomitant]
     Active Substance: TACROLIMUS
     Dosage: 4 MG, DAILY
  5. VITAMIN?E [TOCOPHEROL CALCIUM SUCCINATE] [Concomitant]
     Dosage: UNK
  6. ASPIRIN (E.C.) [Concomitant]
     Active Substance: ASPIRIN
     Dosage: UNK
  7. PROGESTERONE. [Concomitant]
     Active Substance: PROGESTERONE
     Dosage: 60 MG
  8. DYDROGESTERONE [Concomitant]
     Active Substance: DYDROGESTERONE
     Dosage: 80 MG, DAILY
  9. MEDROL [Suspect]
     Active Substance: METHYLPREDNISOLONE
     Indication: IMMUNOSUPPRESSION
     Dosage: 4 MG, DAILY
  10. AZATHIOPRINE. [Concomitant]
     Active Substance: AZATHIOPRINE
     Dosage: 50 MG, DAILY
     Route: 048
  11. PROGRAF [Concomitant]
     Active Substance: TACROLIMUS
     Indication: IMMUNOSUPPRESSION
     Dosage: 1 MG
     Route: 048
  12. PROGRAF [Concomitant]
     Active Substance: TACROLIMUS
     Dosage: 1.5 MG, DAILY
     Route: 048

REACTIONS (3)
  - Uterine haemorrhage [Unknown]
  - Exposure during pregnancy [Unknown]
  - Subchorionic haematoma [Unknown]
